FAERS Safety Report 17032192 (Version 2)
Quarter: 2019Q4

REPORT INFORMATION
  Report Type: Spontaneous
  Country: US (occurrence: US)
  Receive Date: 20191114
  Receipt Date: 20191120
  Transmission Date: 20200122
  Serious: No
  Sender: FDA-Public Use
  Company Number: US-TEVA-2019-US-1135882

PATIENT
  Age: 48 Year
  Sex: Male

DRUGS (3)
  1. VENLAFAXINE [Suspect]
     Active Substance: VENLAFAXINE HYDROCHLORIDE
     Route: 065
     Dates: start: 2013, end: 2016
  2. GABAPENTIN. [Suspect]
     Active Substance: GABAPENTIN
     Route: 065
     Dates: start: 2013, end: 2016
  3. TRAZODONE [Suspect]
     Active Substance: TRAZODONE HYDROCHLORIDE
     Route: 065
     Dates: start: 2013, end: 2016

REACTIONS (9)
  - Pain [Unknown]
  - Oral discomfort [Unknown]
  - Gait disturbance [Unknown]
  - Feeling abnormal [Unknown]
  - Balance disorder [Unknown]
  - Gait inability [Unknown]
  - Coordination abnormal [Unknown]
  - Muscle spasms [Unknown]
  - Muscle spasticity [Unknown]
